FAERS Safety Report 11137741 (Version 1)
Quarter: 2015Q2

REPORT INFORMATION
  Report Type: Spontaneous
  Country: US (occurrence: US)
  Receive Date: 20150526
  Receipt Date: 20150526
  Transmission Date: 20150821
  Serious: Yes (Hospitalization)
  Sender: FDA-Public Use
  Company Number: US-INCYTE CORPORATION-2015IN002210

PATIENT
  Sex: Male

DRUGS (13)
  1. TIMOLOL [Concomitant]
     Active Substance: TIMOLOL
  2. XALATAN [Concomitant]
     Active Substance: LATANOPROST
  3. ATACAND [Concomitant]
     Active Substance: CANDESARTAN CILEXETIL
  4. JAKAFI [Suspect]
     Active Substance: RUXOLITINIB
     Indication: MYELOFIBROSIS
     Dosage: 10 MG, BID
     Route: 048
     Dates: start: 2013
  5. PROCRIT [Concomitant]
     Active Substance: ERYTHROPOIETIN
  6. NIFEDICAL [Concomitant]
  7. IRON [Concomitant]
     Active Substance: IRON
  8. ALLOPURINOL. [Concomitant]
     Active Substance: ALLOPURINOL
  9. AVODART [Concomitant]
     Active Substance: DUTASTERIDE
  10. HYDROXYUREA. [Concomitant]
     Active Substance: HYDROXYUREA
  11. FLOMAX [Concomitant]
     Active Substance: TAMSULOSIN HYDROCHLORIDE
  12. LIPITOR [Concomitant]
     Active Substance: ATORVASTATIN CALCIUM
  13. PREDNISOLONE. [Concomitant]
     Active Substance: PREDNISOLONE

REACTIONS (1)
  - Viral infection [Unknown]
